FAERS Safety Report 25682188 (Version 3)
Quarter: 2025Q3

REPORT INFORMATION
  Report Type: Spontaneous
  Country: US (occurrence: US)
  Receive Date: 20250814
  Receipt Date: 20250922
  Transmission Date: 20251020
  Serious: No
  Sender: LUPIN
  Company Number: US-LUPIN PHARMACEUTICALS INC.-2025-07130

PATIENT
  Age: 68 Year
  Weight: 88.889 kg

DRUGS (1)
  1. TESTOSTERONE GEL 1.62% [Suspect]
     Active Substance: TESTOSTERONE
     Indication: Blood testosterone decreased

REACTIONS (4)
  - Blood testosterone decreased [Unknown]
  - Drug effect less than expected [Unknown]
  - Agitation [Unknown]
  - Product quality issue [Unknown]
